FAERS Safety Report 7939708-X (Version None)
Quarter: 2011Q4

REPORT INFORMATION
  Report Type: 
  Country: None (occurrence: None)
  Receive Date: 20111125
  Receipt Date: 20111117
  Transmission Date: 20120403
  Serious: Yes (Other)
  Sender: FDA-Public Use
  Company Number: PHHY2010US65940

PATIENT
  Sex: Male
  Weight: 123 kg

DRUGS (3)
  1. GLEEVEC [Suspect]
     Indication: CHRONIC MYELOID LEUKAEMIA
     Dosage: 400 MG, DAILY
     Route: 048
     Dates: start: 20010101
  2. SODIUM BICARBONATE [Concomitant]
  3. SIMVASTATIN [Concomitant]

REACTIONS (2)
  - ANAEMIA MACROCYTIC [None]
  - INTERCAPILLARY GLOMERULOSCLEROSIS [None]
